FAERS Safety Report 11891980 (Version 1)
Quarter: 2016Q1

REPORT INFORMATION
  Report Type: Spontaneous
  Country: US (occurrence: None)
  Receive Date: 20160105
  Receipt Date: 20160105
  Transmission Date: 20160526
  Serious: No
  Sender: FDA-Public Use
  Company Number: None

PATIENT
  Age: 53 Year
  Sex: Female
  Weight: 47.63 kg

DRUGS (6)
  1. FLOVENT [Suspect]
     Active Substance: FLUTICASONE PROPIONATE
     Indication: ASTHMA
     Dosage: 2 PUFFS TEMPORARILY TWICE DAILY
     Route: 055
     Dates: start: 20151109, end: 20151113
  2. PROBIOTICS [Concomitant]
     Active Substance: PROBIOTICS NOS
  3. FOLIC ACID. [Concomitant]
     Active Substance: FOLIC ACID
  4. PROTONICS [Concomitant]
  5. XOPENEX [Concomitant]
     Active Substance: LEVALBUTEROL HYDROCHLORIDE
  6. METOPROLOL TARTRATE. [Concomitant]
     Active Substance: METOPROLOL TARTRATE

REACTIONS (1)
  - Device malfunction [None]

NARRATIVE: CASE EVENT DATE: 20151113
